FAERS Safety Report 6083736-9 (Version None)
Quarter: 2009Q1

REPORT INFORMATION
  Report Type: 
  Country: None (occurrence: None)
  Receive Date: 20090217
  Receipt Date: 20090210
  Transmission Date: 20090719
  Serious: Yes (Hospitalization)
  Sender: FDA-Public Use
  Company Number: 2009000342

PATIENT
  Age: 76 Year
  Sex: Male
  Weight: 88.6 kg

DRUGS (5)
  1. ERLOTINIB (ERLOTINIB) (TABLET) (ERLOTINIB) [Suspect]
     Indication: OESOPHAGEAL CARCINOMA
     Dosage: 100 MG, QD, ORAL
     Route: 048
     Dates: start: 20081230
  2. BEVACIZUMAB (INJECTION FOR INFUSION) [Suspect]
     Indication: OESOPHAGEAL CARCINOMA
     Dosage: 15 MG/KG, INTRAVENOUS
     Route: 042
     Dates: start: 20081230
  3. PACLITAXEL [Suspect]
     Indication: OESOPHAGEAL CARCINOMA
     Dosage: 200 MG/M2, INTRAVENOUS
     Route: 042
     Dates: start: 20081230
  4. CARBOPLATIN [Suspect]
     Indication: OESOPHAGEAL CARCINOMA
     Dosage: 5,AUC,INTRAVENOUS
     Route: 042
     Dates: start: 20081230
  5. FLUOROURACIL [Suspect]
     Indication: OESOPHAGEAL CARCINOMA
     Dosage: 225 MG/M2, QD, INTRAVENOUS
     Route: 042
     Dates: start: 20081230

REACTIONS (3)
  - FEBRILE NEUTROPENIA [None]
  - GASTROINTESTINAL HAEMORRHAGE [None]
  - HAEMOGLOBIN DECREASED [None]
